FAERS Safety Report 17777700 (Version 1)
Quarter: 2020Q2

REPORT INFORMATION
  Report Type: Report from Study
  Country: US (occurrence: US)
  Receive Date: 20200513
  Receipt Date: 20200513
  Transmission Date: 20200714
  Serious: No
  Sender: FDA-Public Use
  Company Number: US-ACADIA PHARMACEUTICALS INC.-ACA-2019-014789

PATIENT
  Sex: Female

DRUGS (1)
  1. NUPLAZID [Suspect]
     Active Substance: PIMAVANSERIN TARTRATE
     Indication: PARKINSON^S DISEASE
     Dosage: 34 MG, QD
     Route: 048
     Dates: start: 20190925

REACTIONS (9)
  - Restlessness [Unknown]
  - Hallucination [Unknown]
  - Insomnia [Unknown]
  - Hallucination, visual [Not Recovered/Not Resolved]
  - Soliloquy [Unknown]
  - Lethargy [Unknown]
  - Constipation [Unknown]
  - Cognitive disorder [Unknown]
  - Drug ineffective [Unknown]
